FAERS Safety Report 9805427 (Version 1)
Quarter: 2014Q1

REPORT INFORMATION
  Report Type: Spontaneous
  Country: US (occurrence: None)
  Receive Date: 20140108
  Receipt Date: 20140108
  Transmission Date: 20141002
  Serious: Yes (Disabling)
  Sender: FDA-Public Use
  Company Number: None

PATIENT
  Age: 25 Year
  Sex: Female
  Weight: 99.79 kg

DRUGS (1)
  1. PARAGUARD IUD [Suspect]
     Dates: start: 20080917, end: 20090717

REACTIONS (6)
  - Anaemia [None]
  - Thrombophlebitis superficial [None]
  - Vascular pain [None]
  - Endometriosis [None]
  - Dysmenorrhoea [None]
  - Menorrhagia [None]
